FAERS Safety Report 9621423 (Version 2)
Quarter: 2013Q4

REPORT INFORMATION
  Report Type: Spontaneous
  Country: US (occurrence: US)
  Receive Date: 20131015
  Receipt Date: 20131203
  Transmission Date: 20140711
  Serious: No
  Sender: FDA-Public Use
  Company Number: US-PFIZER INC-2013291317

PATIENT
  Age: 35 Year
  Sex: Male
  Weight: 73.47 kg

DRUGS (2)
  1. ADVIL ALLERGY AND CONGESTION RELIEF [Suspect]
     Indication: SINUS HEADACHE
     Dosage: UNK, ONCE EVERY FOUR HOURS
     Route: 048
     Dates: start: 20131004
  2. AMOXICILLIN [Concomitant]
     Indication: SINUSITIS
     Dosage: UNK, TWO TIMES A DAY

REACTIONS (1)
  - Drug ineffective [Unknown]
